FAERS Safety Report 4464946-0 (Version None)
Quarter: 2004Q4

REPORT INFORMATION
  Report Type: 
  Country: None (occurrence: None)
  Receive Date: 20041004
  Receipt Date: 20040331
  Transmission Date: 20050328
  Serious: No
  Sender: FDA-Public Use
  Company Number: 364928

PATIENT
  Age: 62 Year
  Sex: Female

DRUGS (4)
  1. COREG [Suspect]
     Dosage: 12.5MG TWICE PER DAY
     Route: 048
  2. VASOTEC [Concomitant]
  3. LASIX [Concomitant]
  4. ASPIRIN [Concomitant]

REACTIONS (2)
  - TINNITUS [None]
  - WEIGHT INCREASED [None]
